FAERS Safety Report 4275855-4 (Version None)
Quarter: 2004Q1

REPORT INFORMATION
  Report Type: 
  Country: None (occurrence: None)
  Receive Date: 20040121
  Receipt Date: 20030128
  Transmission Date: 20041129
  Serious: No
  Sender: FDA-Public Use
  Company Number: US-GLAXOSMITHKLINE-A0394435A

PATIENT
  Age: 28 Year
  Sex: Female

DRUGS (2)
  1. VALTREX [Suspect]
     Dosage: 500MG SINGLE DOSE
     Route: 048
     Dates: start: 20030128, end: 20030128
  2. ORAL CONTRACEPTIVES [Concomitant]
     Route: 048

REACTIONS (1)
  - VISUAL FIELD DEFECT [None]
